FAERS Safety Report 8984841 (Version 5)
Quarter: 2014Q1

REPORT INFORMATION
  Report Type: Spontaneous
  Country: US (occurrence: US)
  Receive Date: 20121226
  Receipt Date: 20140311
  Transmission Date: 20141002
  Serious: Yes (Hospitalization, Disabling, Other)
  Sender: FDA-Public Use
  Company Number: US-009507513-1212USA008448

PATIENT
  Sex: Male
  Weight: 73.2 kg

DRUGS (8)
  1. PROPECIA [Suspect]
     Indication: ANDROGENETIC ALOPECIA
     Dosage: 1 MG, UNK
     Route: 048
     Dates: start: 20020504
  2. PROPECIA [Suspect]
     Dosage: 1 MG, UNK
     Route: 048
     Dates: start: 2005, end: 2011
  3. PROSCAR [Suspect]
     Indication: PROSTATIC DISORDER
     Dosage: 5 MG, UNK
     Route: 048
     Dates: start: 20051026, end: 20110519
  4. FINASTERIDE [Suspect]
     Indication: PROSTATIC DISORDER
     Dosage: 5 MG, QD
     Route: 048
     Dates: end: 20110519
  5. RANITIDINE [Concomitant]
     Indication: GASTROOESOPHAGEAL REFLUX DISEASE
     Dosage: UNK
     Dates: start: 200110
  6. FINASTERIDE [Suspect]
     Indication: PROSTATISM
     Dosage: 5 MG, QD
     Route: 048
  7. CROMOLYN SODIUM [Concomitant]
     Indication: HYPERSENSITIVITY
     Dosage: 2 GTT, PRN
     Route: 047
  8. LORATADINE [Concomitant]
     Indication: ALLERGY PROPHYLAXIS
     Dosage: 10 MG, QPM
     Route: 048

REACTIONS (35)
  - Coma hepatic [Unknown]
  - Diverticulitis [Unknown]
  - Sigmoidectomy [Unknown]
  - Colectomy [Unknown]
  - Adverse event [Not Recovered/Not Resolved]
  - Cognitive disorder [Not Recovered/Not Resolved]
  - Anxiety [Unknown]
  - Pain [Unknown]
  - Apathy [Unknown]
  - Bacterial infection [Unknown]
  - Exposure to communicable disease [Unknown]
  - Blister [Unknown]
  - Anxiety [Unknown]
  - Sinus operation [Unknown]
  - Peripheral coldness [Unknown]
  - Stress [Unknown]
  - Cholelithiasis [Unknown]
  - Pain in extremity [Unknown]
  - Injection site erosion [Unknown]
  - Asthma [Unknown]
  - Haemorrhoids [Unknown]
  - Sinusitis [Unknown]
  - Lactose intolerance [Unknown]
  - Somnolence [Unknown]
  - Apnoea [Unknown]
  - Anhedonia [Unknown]
  - Hormone level abnormal [Unknown]
  - Road traffic accident [Unknown]
  - Sinus operation [Unknown]
  - Erectile dysfunction [Unknown]
  - Disturbance in sexual arousal [Unknown]
  - Sexual dysfunction [Not Recovered/Not Resolved]
  - Depression [Unknown]
  - Libido decreased [Unknown]
  - Depression [Unknown]
